FAERS Safety Report 5881531-4 (Version None)
Quarter: 2008Q3

REPORT INFORMATION
  Report Type: 
  Country: None (occurrence: None)
  Receive Date: 20080911
  Receipt Date: 20080827
  Transmission Date: 20090109
  Serious: Yes (Hospitalization)
  Sender: FDA-Public Use
  Company Number: US-S0LVAY-00308004129

PATIENT
  Age: 29 Year
  Sex: Female

DRUGS (4)
  1. MESALAMINE [Suspect]
     Indication: CROHN'S DISEASE
     Dosage: 4000 MILLIGRAM(S) , ORAL
     Route: 048
  2. MERCAPTOPURINE [Suspect]
     Indication: CROHN'S DISEASE
     Dosage: 100 MILLIGRAM(S), 150 MILLIGRAM(S0
  3. CLIDINIUM BROMIDE (CLIDINIUM BROMIDE) [Concomitant]
  4. CHLORDUAZEPOXIDE (CHLORDIAZEPOXIDE) [Concomitant]

REACTIONS (13)
  - ALANINE AMINOTRANSFERASE INCREASED [None]
  - ASPARTATE AMINOTRANSFERASE INCREASED [None]
  - BLOOD BILIRUBIN INCREASED [None]
  - BLOOD LACTATE DEHYDROGENASE INCREASED [None]
  - DRUG INTERACTION [None]
  - DRUG TOXICITY [None]
  - FATIGUE [None]
  - HAEMOGLOBIN DECREASED [None]
  - NAUSEA [None]
  - PAIN [None]
  - PALMAR-PLANTAR ERYTHRODYSAESTHESIA SYNDROME [None]
  - SKIN EROSION [None]
  - WHITE BLOOD CELL COUNT DECREASED [None]
